FAERS Safety Report 7832176-8 (Version None)
Quarter: 2011Q4

REPORT INFORMATION
  Report Type: 
  Country: None (occurrence: None)
  Receive Date: 20111022
  Receipt Date: 20111005
  Transmission Date: 20120403
  Serious: Yes (Other)
  Sender: FDA-Public Use
  Company Number: US-BAYER-2011-032912

PATIENT
  Age: 29 Year
  Sex: Female
  Weight: 63.492 kg

DRUGS (5)
  1. NEXIUM [Concomitant]
     Dosage: 40 MG, UNK
     Route: 048
  2. YAZ [Suspect]
     Indication: ACNE
     Dosage: UNK
     Dates: start: 20070101, end: 20090101
  3. YAZ [Suspect]
     Indication: CONTRACEPTION
  4. PRILOSEC [Concomitant]
  5. REGLAN [Concomitant]

REACTIONS (4)
  - CHOLECYSTITIS CHRONIC [None]
  - CHOLELITHIASIS [None]
  - INJURY [None]
  - PAIN [None]
